FAERS Safety Report 8571387-3 (Version None)
Quarter: 2012Q3

REPORT INFORMATION
  Report Type: 
  Country: None (occurrence: None)
  Receive Date: 20120806
  Receipt Date: 20120723
  Transmission Date: 20120928
  Serious: Yes (Other)
  Sender: FDA-Public Use
  Company Number: JP-MSD-1207JPN006147

PATIENT

DRUGS (4)
  1. PEG-INTRON [Suspect]
     Dosage: 60 MICROGRAM, UNK
     Route: 058
     Dates: start: 20071101
  2. REBETOL [Suspect]
     Indication: HEPATITIS C
     Dosage: 200 MG, UNK
     Dates: start: 20051201
  3. PEG-INTRON [Suspect]
     Indication: HEPATITIS C
     Dosage: 60 MICROGRAM, UNK
     Route: 058
     Dates: start: 20051201
  4. REBETOL [Suspect]
     Dosage: 200 UNK, UNK
     Route: 048
     Dates: start: 20051101

REACTIONS (2)
  - PRURITUS [None]
  - HEPATIC NEOPLASM MALIGNANT RECURRENT [None]
